FAERS Safety Report 15374463 (Version 2)
Quarter: 2018Q4

REPORT INFORMATION
  Report Type: Spontaneous
  Country: US (occurrence: US)
  Receive Date: 20180912
  Receipt Date: 20181025
  Transmission Date: 20190204
  Serious: No
  Sender: FDA-Public Use
  Company Number: US-ASTRAZENECA-2018SF12281

PATIENT
  Age: 48 Year
  Sex: Female
  Weight: 72.1 kg

DRUGS (1)
  1. FASENRA [Suspect]
     Active Substance: BENRALIZUMAB
     Indication: ASTHMA
     Dosage: 30 MG/ML EVERY OTHER MONTH
     Route: 058
     Dates: start: 20180705

REACTIONS (3)
  - Dysgeusia [Not Recovered/Not Resolved]
  - Adverse drug reaction [Unknown]
  - Injection site pain [Not Recovered/Not Resolved]

NARRATIVE: CASE EVENT DATE: 20180705
